FAERS Safety Report 17395882 (Version 1)
Quarter: 2020Q1

REPORT INFORMATION
  Report Type: Spontaneous
  Country: CN (occurrence: CN)
  Receive Date: 20200210
  Receipt Date: 20200210
  Transmission Date: 20200409
  Serious: No
  Sender: FDA-Public Use
  Company Number: US-SLATE RUN PHARMACEUTICALS-SLTR-AE-20-12

PATIENT
  Age: 27 Year
  Sex: Male

DRUGS (4)
  1. IMIPENEM-CILASTIN SODIUM [Concomitant]
     Active Substance: CILASTATIN SODIUM\IMIPENEM
  2. VORICONAZOLE. [Concomitant]
     Active Substance: VORICONAZOLE
  3. FOSCARNET [Concomitant]
     Active Substance: FOSCARNET
  4. 70436-089-55 GANCICLOVIR FOR INJECTION DRY VIAL USP 500 MG [Suspect]
     Active Substance: GANCICLOVIR SODIUM
     Indication: CYTOMEGALOVIRUS CHORIORETINITIS

REACTIONS (4)
  - Drug resistance [Unknown]
  - Headache [Recovered/Resolved]
  - Encephalitis [Recovered/Resolved]
  - Depressed level of consciousness [Recovered/Resolved]
